FAERS Safety Report 9779648 (Version 1)
Quarter: 2013Q4

REPORT INFORMATION
  Report Type: Spontaneous
  Country: US (occurrence: US)
  Receive Date: 20131223
  Receipt Date: 20131223
  Transmission Date: 20140711
  Serious: No
  Sender: FDA-Public Use
  Company Number: US-PFIZER INC-2013362432

PATIENT
  Age: 83 Year
  Sex: Female

DRUGS (11)
  1. TOVIAZ [Suspect]
     Dosage: UNK
  2. IBUPROFEN [Suspect]
     Dosage: UNK
  3. INDERAL [Suspect]
     Dosage: UNK
  4. CARDIZEM [Suspect]
     Dosage: UNK
  5. DILACOR XR [Suspect]
     Dosage: UNK
  6. HYDROCODONE [Suspect]
     Dosage: UNK
  7. LORTAB [Suspect]
     Dosage: UNK
  8. ULTRAM [Suspect]
     Dosage: UNK
  9. FOSAMAX [Suspect]
     Dosage: UNK
  10. TYLENOL [Suspect]
     Dosage: 500 MG, UNK
     Route: 048
  11. TETANUS IMMUNE GLOBULIN (HUMAN) [Suspect]
     Dosage: UNK

REACTIONS (1)
  - Drug hypersensitivity [Unknown]
